FAERS Safety Report 5716415-5 (Version None)
Quarter: 2008Q2

REPORT INFORMATION
  Report Type: 
  Country: None (occurrence: None)
  Receive Date: 20080422
  Receipt Date: 20080416
  Transmission Date: 20081010
  Serious: Yes (Life-Threatening, Hospitalization)
  Sender: FDA-Public Use
  Company Number: 6042329

PATIENT
  Age: 54 Year
  Sex: Female

DRUGS (8)
  1. LODOZ 2.5 MG/6.25 MG (TABLET) (HYDROCHLOROTHIAZIDE, BISOPROLOL FUMARAT [Suspect]
     Indication: DRUG USE FOR UNKNOWN INDICATION
     Dosage: 15 TABLETS, SINGLE INTAKE (1 D) ORAL
     Route: 048
  2. IMOVANE (ZOPICLONE) [Suspect]
     Indication: DRUG USE FOR UNKNOWN INDICATION
     Dosage: 8 TALBETS, SINGLE INTAKE (1 D) ORAL
     Route: 048
  3. ALPRAZOLAM [Suspect]
     Indication: DRUG USE FOR UNKNOWN INDICATION
     Dosage: 60 TABLETS, SINGLE INTAKE (1 D) ORAL
     Route: 048
  4. AVLOCARDYL (40 MG, TABLET) (PROPRANOLOL) [Suspect]
     Indication: DRUG USE FOR UNKNOWN INDICATION
     Dosage: 20 TABLETS, SINGLE INTAKE (1 D) ORAL
     Route: 048
  5. PRAVASTATIN [Suspect]
     Indication: DRUG USE FOR UNKNOWN INDICATION
  6. STABLON (TIANEPTINE) [Suspect]
     Indication: DRUG USE FOR UNKNOWN INDICATION
  7. PRAVASTATIN (200 MG) (PRAVASTATIN) [Concomitant]
  8. STABLON (TIANEPTINE) [Concomitant]

REACTIONS (3)
  - COMA [None]
  - MULTIPLE DRUG OVERDOSE [None]
  - SUICIDE ATTEMPT [None]
